FAERS Safety Report 9894655 (Version 2)
Quarter: 2014Q1

REPORT INFORMATION
  Report Type: Spontaneous
  Country: DK (occurrence: NL)
  Receive Date: 20140213
  Receipt Date: 20140225
  Transmission Date: 20141002
  Serious: Yes (Other)
  Sender: FDA-Public Use
  Company Number: NL-FRI-1000054208

PATIENT
  Age: 52 Year
  Sex: Female

DRUGS (4)
  1. ACLIDINIUM [Suspect]
     Indication: CHRONIC OBSTRUCTIVE PULMONARY DISEASE
     Dosage: TWICE DAILY
     Dates: start: 20140125, end: 20140126
  2. FOSTER [Concomitant]
     Dosage: 4 DF
  3. AVAMYS [Concomitant]
     Dosage: 2 DF
  4. COMBIVENT [Concomitant]
     Dosage: 0 TO 4 DAILY

REACTIONS (3)
  - Dyspnoea [Recovering/Resolving]
  - Product taste abnormal [Not Recovered/Not Resolved]
  - Tongue coated [Unknown]
